FAERS Safety Report 17638025 (Version 1)
Quarter: 2020Q2

REPORT INFORMATION
  Report Type: Spontaneous
  Country: US (occurrence: US)
  Receive Date: 20200407
  Receipt Date: 20200407
  Transmission Date: 20200713
  Serious: Yes (Hospitalization)
  Sender: FDA-Public Use
  Company Number: None

PATIENT
  Age: 54 Year
  Sex: Male
  Weight: 83.9 kg

DRUGS (13)
  1. RUCAPARIB [Suspect]
     Active Substance: RUCAPARIB
     Indication: SMALL CELL LUNG CANCER
     Route: 044
     Dates: start: 20191212, end: 20200404
  2. ASA [Concomitant]
     Active Substance: ASPIRIN
  3. ATORVASTIN [Concomitant]
     Active Substance: ATORVASTATIN
  4. TIOTROPIUM-OLADATEROL INHALER [Concomitant]
  5. PROCHLORPERAZINE. [Concomitant]
     Active Substance: PROCHLORPERAZINE
  6. BOOST [Concomitant]
     Active Substance: DIETARY SUPPLEMENT
  7. ALBUTEROL INHALER [Concomitant]
     Active Substance: ALBUTEROL
  8. BACLOFEN. [Concomitant]
     Active Substance: BACLOFEN
  9. OXYCODONE [Concomitant]
     Active Substance: OXYCODONE
  10. MARINOL [Concomitant]
     Active Substance: DRONABINOL
  11. ZOFRAN [Concomitant]
     Active Substance: ONDANSETRON HYDROCHLORIDE
  12. NIVOLUMAB [Suspect]
     Active Substance: NIVOLUMAB
     Indication: SMALL CELL LUNG CANCER
     Dosage: ?          OTHER FREQUENCY:Q4WKS;?
     Route: 042
     Dates: start: 20191212, end: 20200327
  13. BENZONATATE. [Concomitant]
     Active Substance: BENZONATATE

REACTIONS (3)
  - Generalised tonic-clonic seizure [None]
  - Disease progression [None]
  - Central nervous system lesion [None]

NARRATIVE: CASE EVENT DATE: 20200404
